FAERS Safety Report 24618776 (Version 1)
Quarter: 2024Q4

REPORT INFORMATION
  Report Type: Spontaneous
  Country: EG (occurrence: EG)
  Receive Date: 20241114
  Receipt Date: 20241114
  Transmission Date: 20250115
  Serious: Yes (Life-Threatening)
  Sender: PFIZER
  Company Number: EG-PFIZER INC-PV202400145747

PATIENT
  Age: 44 Year
  Sex: Female
  Weight: 88 kg

DRUGS (4)
  1. CARBOPLATIN [Suspect]
     Active Substance: CARBOPLATIN
     Indication: Breast cancer
     Dosage: 227 MG
     Route: 042
     Dates: start: 20240821
  2. CHLORPHENIRAMINE [Concomitant]
     Active Substance: CHLORPHENIRAMINE
     Indication: Chemotherapy side effect prophylaxis
     Dosage: UNK
  3. DEXAMETHASONE [Concomitant]
     Active Substance: DEXAMETHASONE
     Indication: Chemotherapy side effect prophylaxis
     Dosage: UNK
  4. GRANISETRONE [Concomitant]
     Indication: Chemotherapy side effect prophylaxis
     Dosage: UNK

REACTIONS (1)
  - Flushing [Recovered/Resolved]

NARRATIVE: CASE EVENT DATE: 20241016
